FAERS Safety Report 4491960-1 (Version None)
Quarter: 2004Q4

REPORT INFORMATION
  Report Type: 
  Country: None (occurrence: None)
  Receive Date: 20041029
  Receipt Date: 20041029
  Transmission Date: 20050328
  Serious: Yes (Other)
  Sender: FDA-Public Use
  Company Number: None

PATIENT
  Age: 83 Year
  Sex: Female
  Weight: 64.4108 kg

DRUGS (1)
  1. CYMBALTA [Suspect]
     Indication: NEUROPATHY PERIPHERAL
     Dosage: 60 MG BY MOUTH ONCE A DAY
     Route: 048

REACTIONS (2)
  - FALL [None]
  - MUSCULAR WEAKNESS [None]
